FAERS Safety Report 23377481 (Version 1)
Quarter: 2024Q1

REPORT INFORMATION
  Report Type: Spontaneous
  Country: US (occurrence: None)
  Receive Date: 20240105
  Receipt Date: 20240105
  Transmission Date: 20240410
  Serious: Yes (Other)
  Sender: FDA-Public Use
  Company Number: None

PATIENT
  Age: 54 Year
  Sex: Female

DRUGS (16)
  1. AMBRISENTAN [Suspect]
     Active Substance: AMBRISENTAN
     Indication: Pulmonary hypertension
     Dosage: FREQUENCY : DAILY;?
     Route: 048
     Dates: start: 20230706
  2. SILDENAFIL [Concomitant]
  3. HYDROMORPHONE [Concomitant]
  4. NARCAN [Concomitant]
  5. FUROSEMIDE [Concomitant]
  6. POTASSIUM CHLORIDE [Concomitant]
  7. SPIRONOLACTONE [Concomitant]
  8. OMEPRAZOLE [Concomitant]
  9. PRADAXA [Concomitant]
  10. OLANZAPINE [Concomitant]
  11. DULOXETINE [Concomitant]
  12. XIFAXAN [Concomitant]
  13. LEVOTHYROXINE [Concomitant]
  14. FERROUS SULFATE [Concomitant]
  15. MERCAPTOPURINE [Concomitant]
  16. TRIAMCINOLONE TOP CREAM [Concomitant]

REACTIONS (3)
  - Diarrhoea [None]
  - Dehydration [None]
  - Grief reaction [None]

NARRATIVE: CASE EVENT DATE: 20231130
